FAERS Safety Report 7250918-X (Version None)
Quarter: 2011Q1

REPORT INFORMATION
  Report Type: 
  Country: None (occurrence: None)
  Receive Date: 20110128
  Receipt Date: 20110119
  Transmission Date: 20110831
  Serious: Yes (Other)
  Sender: FDA-Public Use
  Company Number: A0908751A

PATIENT
  Sex: Male

DRUGS (1)
  1. PAXIL [Suspect]
     Indication: DEPRESSION
     Route: 048
     Dates: start: 19980801, end: 20071101

REACTIONS (6)
  - PYROMANIA [None]
  - CLAUSTROPHOBIA [None]
  - ABNORMAL BEHAVIOUR [None]
  - ALCOHOLISM [None]
  - HIGH RISK SEXUAL BEHAVIOUR [None]
  - ALCOHOL ABUSE [None]
